FAERS Safety Report 24269589 (Version 1)
Quarter: 2024Q3

REPORT INFORMATION
  Report Type: Spontaneous
  Country: ZA (occurrence: None)
  Receive Date: 20240830
  Receipt Date: 20240830
  Transmission Date: 20241016
  Serious: Yes (Hospitalization)
  Sender: ASTRAZENECA
  Company Number: 2024A194527

PATIENT
  Age: 76 Year
  Sex: Female

DRUGS (8)
  1. BUDESONIDE\FORMOTEROL FUMARATE DIHYDRATE [Suspect]
     Active Substance: BUDESONIDE\FORMOTEROL FUMARATE DIHYDRATE
     Indication: Asthma
     Route: 055
  2. DILINCT DRY [Concomitant]
  3. THEOPHYLLINE [Concomitant]
     Active Substance: THEOPHYLLINE
     Indication: Bronchospasm
  4. MONTELUKAST SODIUM [Concomitant]
     Active Substance: MONTELUKAST\MONTELUKAST SODIUM
     Indication: Asthma
  5. AMIODARONE [Concomitant]
     Active Substance: AMIODARONE
     Indication: Cerebral dysrhythmia
  6. VERAPAMIL HYDROCHLORIDE [Concomitant]
     Active Substance: VERAPAMIL HYDROCHLORIDE
     Indication: Hypertension
  7. AMIODARONE [Concomitant]
     Active Substance: AMIODARONE
     Indication: Cerebral dysrhythmia
  8. NORFLEX [Concomitant]
     Active Substance: ORPHENADRINE CITRATE

REACTIONS (1)
  - Lung disorder [Unknown]
